FAERS Safety Report 23918639 (Version 2)
Quarter: 2024Q2

REPORT INFORMATION
  Report Type: Spontaneous
  Country: US (occurrence: US)
  Receive Date: 20240530
  Receipt Date: 20240613
  Transmission Date: 20240716
  Serious: No
  Sender: FDA-Public Use
  Company Number: US-Blueprint Medicines Corporation-3686

PATIENT
  Sex: Female

DRUGS (2)
  1. AYVAKIT [Suspect]
     Active Substance: AVAPRITINIB
     Indication: Gastrointestinal stromal tumour
     Route: 065
     Dates: start: 20240426
  2. AYVAKIT [Suspect]
     Active Substance: AVAPRITINIB
     Route: 065
     Dates: start: 20240426

REACTIONS (11)
  - Swelling face [Unknown]
  - Fatigue [Unknown]
  - Lacrimation increased [Unknown]
  - Asthenia [Unknown]
  - Decreased appetite [Unknown]
  - Ageusia [Unknown]
  - Dysgeusia [Unknown]
  - Dry mouth [Unknown]
  - Dysphonia [Unknown]
  - Diarrhoea [Unknown]
  - Frequent bowel movements [Unknown]
